FAERS Safety Report 4372665-4 (Version None)
Quarter: 2004Q2

REPORT INFORMATION
  Report Type: 
  Country: None (occurrence: None)
  Receive Date: 20040526
  Receipt Date: 20040514
  Transmission Date: 20050107
  Serious: Yes (Hospitalization, Other)
  Sender: FDA-Public Use
  Company Number: 2004033108

PATIENT
  Age: 51 Year
  Sex: Male
  Weight: 109 kg

DRUGS (6)
  1. VFEND [Suspect]
     Indication: ILL-DEFINED DISORDER
     Dosage: INTRAVENOUS
     Route: 042
     Dates: start: 20040214, end: 20040214
  2. CIPROFLOXACIN [Suspect]
     Indication: ILL-DEFINED DISORDER
     Dosage: INTRAVENOUS
     Route: 042
     Dates: start: 20040212, end: 20040214
  3. DOLASETRON MESILATE [Concomitant]
  4. TEICOPLANIN [Concomitant]
  5. PANTOPRAZOLE [Concomitant]
  6. FILGRASTIM [Concomitant]

REACTIONS (3)
  - CONFUSIONAL STATE [None]
  - HALLUCINATION [None]
  - LYMPHOCYTIC LEUKAEMIA [None]
